FAERS Safety Report 18834507 (Version 1)
Quarter: 2021Q1

REPORT INFORMATION
  Report Type: Spontaneous
  Country: TW (occurrence: TW)
  Receive Date: 20210203
  Receipt Date: 20210203
  Transmission Date: 20210419
  Serious: No
  Sender: FDA-Public Use
  Company Number: TW-LUPIN PHARMACEUTICALS INC.-2021-00929

PATIENT
  Age: 19 Month
  Sex: Male

DRUGS (2)
  1. CEFTRIAXONE. [Suspect]
     Active Substance: CEFTRIAXONE
     Indication: ENTEROCOLITIS BACTERIAL
     Dosage: 100 MILLIGRAM/KILOGRAM, BID
     Route: 042
  2. CEFTRIAXONE. [Suspect]
     Active Substance: CEFTRIAXONE
     Indication: GASTROENTERITIS SALMONELLA

REACTIONS (1)
  - Cholelithiasis [Recovering/Resolving]
